FAERS Safety Report 6418402-0 (Version None)
Quarter: 2009Q4

REPORT INFORMATION
  Report Type: 
  Country: None (occurrence: None)
  Receive Date: 20091026
  Receipt Date: 20091013
  Transmission Date: 20100525
  Serious: Yes (Hospitalization, Disabling, Other)
  Sender: FDA-Public Use
  Company Number: ADR37212009

PATIENT
  Age: 77 Year
  Sex: Female

DRUGS (5)
  1. SIMVASTATIN [Suspect]
     Indication: HYPERCHOLESTEROLAEMIA
     Dosage: 40 MG DAILY ORAL USE
     Route: 048
     Dates: start: 20041108, end: 20071004
  2. SIMVASTATIN [Suspect]
     Indication: HYPERLIPIDAEMIA
     Dosage: 40 MG DAILY ORAL USE
     Route: 048
     Dates: start: 20041108, end: 20071004
  3. ACETAMINOPHEN [Concomitant]
  4. ATENOLOL [Concomitant]
  5. FLUOXETINE [Concomitant]

REACTIONS (4)
  - HEAD INJURY [None]
  - JOINT DISLOCATION POSTOPERATIVE [None]
  - LOSS OF CONSCIOUSNESS [None]
  - TREATMENT FAILURE [None]
